FAERS Safety Report 11656166 (Version 1)
Quarter: 2015Q4

REPORT INFORMATION
  Report Type: Report from Study
  Country: BR (occurrence: BR)
  Receive Date: 20151023
  Receipt Date: 20151023
  Transmission Date: 20160304
  Serious: Yes (Hospitalization)
  Sender: FDA-Public Use
  Company Number: BR-ABBVIE-15K-020-1484798-00

PATIENT
  Age: 31 Year
  Sex: Female
  Weight: 42 kg

DRUGS (6)
  1. HUMIRA [Suspect]
     Active Substance: ADALIMUMAB
     Dosage: WEEK 2, LOADING DOSE
     Route: 058
     Dates: start: 201509, end: 201509
  2. MESALAZINE [Concomitant]
     Active Substance: MESALAMINE
     Indication: DRUG THERAPY
     Dates: start: 201509
  3. OMEPRAZOLE. [Concomitant]
     Active Substance: OMEPRAZOLE
     Indication: DRUG THERAPY
     Dates: start: 201509
  4. HUMIRA [Suspect]
     Active Substance: ADALIMUMAB
     Dosage: MAINTENANCE DOSE
     Route: 058
     Dates: start: 2015
  5. PREDNISONE. [Concomitant]
     Active Substance: PREDNISONE
     Indication: PRODUCT USED FOR UNKNOWN INDICATION
     Route: 048
     Dates: start: 201509
  6. HUMIRA [Suspect]
     Active Substance: ADALIMUMAB
     Indication: CROHN^S DISEASE
     Dosage: WEEK 1, LOADING DOSE
     Route: 058
     Dates: start: 20150902, end: 20150902

REACTIONS (7)
  - Haemorrhage [Unknown]
  - Hair colour changes [Not Recovered/Not Resolved]
  - Aphthous ulcer [Not Recovered/Not Resolved]
  - Asthenia [Unknown]
  - Gastrointestinal infection [Unknown]
  - Immunodeficiency [Unknown]
  - Crohn^s disease [Recovered/Resolved]

NARRATIVE: CASE EVENT DATE: 2015
